FAERS Safety Report 9916216 (Version 1)
Quarter: 2014Q1

REPORT INFORMATION
  Report Type: Spontaneous
  Country: BR (occurrence: BR)
  Receive Date: 20140221
  Receipt Date: 20140221
  Transmission Date: 20141002
  Serious: Yes (Other)
  Sender: FDA-Public Use
  Company Number: BR-JNJFOC-20140211089

PATIENT
  Age: 26 Year
  Sex: Female
  Weight: 70 kg

DRUGS (6)
  1. SIMPONI [Suspect]
     Indication: RHEUMATOID ARTHRITIS
     Route: 058
     Dates: start: 201310
  2. PREDNISONE [Concomitant]
     Indication: RHEUMATOID ARTHRITIS
     Route: 065
  3. OMEPRAZOLE [Concomitant]
     Indication: GASTRITIS
     Route: 065
  4. CALCIUM [Concomitant]
     Indication: IRON DEFICIENCY ANAEMIA
     Route: 065
  5. IRON [Concomitant]
     Indication: IRON DEFICIENCY ANAEMIA
     Route: 065
  6. LEFLUNOMIDE [Concomitant]
     Indication: MUSCLE ATROPHY
     Route: 065

REACTIONS (3)
  - Syncope [Recovered/Resolved]
  - Injection site hypoaesthesia [Recovered/Resolved]
  - Injection site pain [Recovered/Resolved]
